FAERS Safety Report 23853543 (Version 1)
Quarter: 2024Q2

REPORT INFORMATION
  Report Type: Report from Study
  Country: US (occurrence: US)
  Receive Date: 20240514
  Receipt Date: 20240514
  Transmission Date: 20240716
  Serious: Yes (Hospitalization)
  Sender: FDA-Public Use
  Company Number: US-GILEAD-2024-0665374

PATIENT
  Age: 46 Year
  Sex: Female

DRUGS (4)
  1. AMBRISENTAN [Suspect]
     Active Substance: AMBRISENTAN
     Indication: Pulmonary arterial hypertension
     Dosage: 10 MG, QD
     Route: 065
     Dates: start: 202308
  2. VELETRI [Suspect]
     Active Substance: EPOPROSTENOL
     Indication: Pulmonary arterial hypertension
     Dosage: 30 NG, Q1MINUTE
     Route: 065
     Dates: start: 202210
  3. VELETRI [Suspect]
     Active Substance: EPOPROSTENOL
     Dosage: 30 ML, Q1MINUTE
     Route: 065
     Dates: start: 202310
  4. VELETRI [Suspect]
     Active Substance: EPOPROSTENOL
     Dosage: 30 UG/KG, CYCLICAL
     Route: 065
     Dates: start: 202310

REACTIONS (3)
  - Dizziness [Not Recovered/Not Resolved]
  - Palpitations [Not Recovered/Not Resolved]
  - Vomiting [Unknown]
